FAERS Safety Report 9842205 (Version 1)
Quarter: 2014Q1

REPORT INFORMATION
  Report Type: Spontaneous
  Country: US (occurrence: US)
  Receive Date: 20140124
  Receipt Date: 20140124
  Transmission Date: 20141002
  Serious: Yes (Hospitalization)
  Sender: FDA-Public Use
  Company Number: US-GLAXOSMITHKLINE-A1057093A

PATIENT
  Age: 53 Year
  Sex: Female

DRUGS (4)
  1. ADVAIR [Suspect]
     Indication: CHRONIC OBSTRUCTIVE PULMONARY DISEASE
     Dosage: 1PUFF TWICE PER DAY
     Route: 055
     Dates: start: 2008, end: 2013
  2. SPIRIVA [Suspect]
     Indication: CHRONIC OBSTRUCTIVE PULMONARY DISEASE
     Dosage: 1PUFF PER DAY
     Route: 055
     Dates: start: 2010, end: 2013
  3. XOPENEX [Concomitant]
  4. EFFEXOR XR [Concomitant]

REACTIONS (9)
  - Lung neoplasm malignant [Recovered/Resolved]
  - Lung operation [Unknown]
  - Atelectasis [Unknown]
  - Biopsy lung [Recovered/Resolved]
  - Oral candidiasis [Unknown]
  - Drug administration error [Unknown]
  - Computerised tomogram abnormal [Recovered/Resolved]
  - Feeling abnormal [Unknown]
  - Dyspnoea [Not Recovered/Not Resolved]
